FAERS Safety Report 6416011-0 (Version None)
Quarter: 2009Q4

REPORT INFORMATION
  Report Type: 
  Country: None (occurrence: None)
  Receive Date: 20091027
  Receipt Date: 20091019
  Transmission Date: 20100525
  Serious: Yes (Hospitalization)
  Sender: FDA-Public Use
  Company Number: ES-ELI_LILLY_AND_COMPANY-ES200910004759

PATIENT
  Age: 58 Year
  Sex: Male

DRUGS (9)
  1. ALIMTA [Suspect]
     Indication: LUNG ADENOCARCINOMA STAGE IV
     Dosage: 500 MG/M2, UNKNOWN
  2. CARBOPLATIN [Concomitant]
     Dosage: UNK, UNKNOWN
  3. OPTOVITE B12 [Concomitant]
     Dosage: 1 MG, UNK
     Route: 030
  4. ROCHEVIT [Concomitant]
     Route: 048
  5. DEXAMETHASONE [Concomitant]
     Dosage: 20 MG, ONCE 30MINS BEFORE CHEMOTHERAPY INFUSION
  6. DEXAMETHASONE [Concomitant]
     Dosage: 4 MG, DAILY (1/D) 3 DAYS FOLLOWING CHEMOTHERAPY
     Route: 048
  7. SUPRADYN [Concomitant]
     Dosage: UNK, UNKNOWN
  8. KETIPINOR [Concomitant]
     Indication: BIPOLAR DISORDER
     Dosage: 200 MG, DAILY (1/D)
  9. VALPROIC ACID [Concomitant]
     Indication: BIPOLAR DISORDER
     Dosage: 500 MG, 2/D

REACTIONS (1)
  - TOXIC EPIDERMAL NECROLYSIS [None]
